FAERS Safety Report 12485872 (Version 1)
Quarter: 2016Q2

REPORT INFORMATION
  Report Type: Spontaneous
  Country: US (occurrence: US)
  Receive Date: 20160621
  Receipt Date: 20160621
  Transmission Date: 20160815
  Serious: Yes (Other)
  Sender: FDA-Public Use
  Company Number: ALCN2016US004288

PATIENT
  Age: 73 Year
  Sex: Male

DRUGS (2)
  1. CIPROFLOXACIN. [Concomitant]
     Active Substance: CIPROFLOXACIN
     Indication: OTITIS EXTERNA
     Route: 048
  2. OFLOXACIN. [Suspect]
     Active Substance: OFLOXACIN
     Indication: OTITIS EXTERNA
     Dosage: UNK
     Route: 001

REACTIONS (2)
  - Aphasia [Recovering/Resolving]
  - Amnesia [Recovering/Resolving]
